FAERS Safety Report 9080639 (Version 1)
Quarter: 2013Q1

REPORT INFORMATION
  Report Type: Report from Study
  Country: US (occurrence: US)
  Receive Date: 20130130
  Receipt Date: 20130130
  Transmission Date: 20140127
  Serious: No
  Sender: FDA-Public Use
  Company Number: US-ABBOTT-12P-163-0971582-00

PATIENT
  Age: 51 None
  Sex: Female
  Weight: 110.32 kg

DRUGS (1)
  1. HUMIRA 40 MG/ 0.8 ML PRE-FILLED SYRINGE [Suspect]
     Indication: RHEUMATOID ARTHRITIS
     Route: 058
     Dates: start: 2009

REACTIONS (7)
  - Malaise [Not Recovered/Not Resolved]
  - Nervous system disorder [Recovered/Resolved]
  - Panic attack [Recovered/Resolved]
  - Tremor [Not Recovered/Not Resolved]
  - Fungal infection [Recovering/Resolving]
  - Infected dermal cyst [Not Recovered/Not Resolved]
  - Urinary tract infection [Recovering/Resolving]
